FAERS Safety Report 5499790-9 (Version None)
Quarter: 2007Q4

REPORT INFORMATION
  Report Type: 
  Country: None (occurrence: None)
  Receive Date: 20071026
  Receipt Date: 20071012
  Transmission Date: 20080405
  Serious: Yes (Death)
  Sender: FDA-Public Use
  Company Number: CA-GENENTECH-250182

PATIENT
  Sex: Male

DRUGS (1)
  1. AVASTIN [Suspect]
     Indication: BRAIN NEOPLASM MALIGNANT
     Dosage: 300 MG, UNK
     Route: 042
     Dates: start: 20070926, end: 20070926

REACTIONS (1)
  - DEATH [None]
